FAERS Safety Report 6096268-9 (Version None)
Quarter: 2009Q1

REPORT INFORMATION
  Report Type: 
  Country: None (occurrence: None)
  Receive Date: 20090227
  Receipt Date: 20081024
  Transmission Date: 20090719
  Serious: No
  Sender: FDA-Public Use
  Company Number: A0753514A

PATIENT
  Sex: Male

DRUGS (3)
  1. LAMICTAL [Suspect]
     Indication: DEPRESSION
     Dosage: 100MG TWICE PER DAY
     Route: 048
     Dates: start: 20060601
  2. NEURONTIN [Concomitant]
  3. SOMA [Concomitant]

REACTIONS (4)
  - HEART RATE IRREGULAR [None]
  - HYPOAESTHESIA [None]
  - MOOD SWINGS [None]
  - PARAESTHESIA [None]
